FAERS Safety Report 7303535-7 (Version None)
Quarter: 2011Q1

REPORT INFORMATION
  Report Type: 
  Country: None (occurrence: None)
  Receive Date: 20110221
  Receipt Date: 20110216
  Transmission Date: 20110831
  Serious: Yes (Death)
  Sender: FDA-Public Use
  Company Number: PHHY2011BR12989

PATIENT
  Age: 84 Year
  Sex: Female
  Weight: 80 kg

DRUGS (8)
  1. AMINOPHYLLINE [Concomitant]
  2. PENTOXIFYLLINE [Concomitant]
  3. THIAMINE HYDROCHLORIDE [Concomitant]
  4. COMBIVENT [Concomitant]
  5. LOSARTAN [Concomitant]
  6. OMEPRAZOLE [Concomitant]
  7. FORASEQ [Suspect]
     Indication: LUNG DISORDER
     Dosage: 02 OR MORE INHALATION DAILY
  8. BROMOPRIDE [Concomitant]

REACTIONS (1)
  - MULTI-ORGAN FAILURE [None]
